FAERS Safety Report 20837619 (Version 2)
Quarter: 2022Q2

REPORT INFORMATION
  Report Type: Report from Study
  Country: CA (occurrence: CA)
  Receive Date: 20220517
  Receipt Date: 20220615
  Transmission Date: 20220720
  Serious: Yes (Other)
  Sender: FDA-Public Use
  Company Number: CA-ABBVIE-22K-028-4390447-00

PATIENT
  Sex: Male

DRUGS (5)
  1. HUMIRA [Suspect]
     Active Substance: ADALIMUMAB
     Indication: Rheumatoid arthritis
     Route: 058
     Dates: start: 20160314
  2. CELEBREX [Concomitant]
     Active Substance: CELECOXIB
     Indication: Product used for unknown indication
  3. CELEBREX [Concomitant]
     Active Substance: CELECOXIB
  4. PREDNISONE [Concomitant]
     Active Substance: PREDNISONE
     Indication: Product used for unknown indication
     Dosage: 2 X 5MG
  5. PREDNISONE [Concomitant]
     Active Substance: PREDNISONE

REACTIONS (10)
  - Intestinal perforation [Unknown]
  - Gastrointestinal infection [Unknown]
  - Feeling abnormal [Unknown]
  - Blood pressure abnormal [Unknown]
  - Hand deformity [Unknown]
  - Nodule [Unknown]
  - Musculoskeletal discomfort [Unknown]
  - Inflammation [Recovering/Resolving]
  - Injection site pain [Unknown]
  - Myalgia [Unknown]

NARRATIVE: CASE EVENT DATE: 20200101
